FAERS Safety Report 14846382 (Version 1)
Quarter: 2018Q2

REPORT INFORMATION
  Report Type: Spontaneous
  Country: ES (occurrence: ES)
  Receive Date: 20180504
  Receipt Date: 20180504
  Transmission Date: 20180711
  Serious: Yes (Other)
  Sender: FDA-Public Use
  Company Number: ES-TEVA-2018-ES-886837

PATIENT
  Age: 36 Year
  Sex: Male

DRUGS (1)
  1. TRAMADOL. [Suspect]
     Active Substance: TRAMADOL
     Route: 065
     Dates: start: 20180201, end: 20180201

REACTIONS (2)
  - Face oedema [Unknown]
  - Rash [Unknown]

NARRATIVE: CASE EVENT DATE: 20180201
